FAERS Safety Report 19444376 (Version 1)
Quarter: 2021Q2

REPORT INFORMATION
  Report Type: Report from Study
  Country: US (occurrence: US)
  Receive Date: 20210621
  Receipt Date: 20210621
  Transmission Date: 20210717
  Serious: Yes (Other)
  Sender: FDA-Public Use
  Company Number: US-SUNOVION-2021SUN002264

PATIENT
  Age: 50 Year
  Sex: Male

DRUGS (1)
  1. LATUDA [Suspect]
     Active Substance: LURASIDONE HYDROCHLORIDE
     Indication: SCHIZOPHRENIA
     Dosage: UNK
     Route: 048

REACTIONS (10)
  - Diabetes mellitus [Unknown]
  - Weight increased [Unknown]
  - Tardive dyskinesia [Unknown]
  - Drug ineffective [Unknown]
  - Cardiac disorder [Unknown]
  - Blood cholesterol increased [Unknown]
  - Therapeutic product effect delayed [Unknown]
  - Suicidal ideation [Unknown]
  - Treatment failure [Unknown]
  - Sexual dysfunction [Unknown]
